FAERS Safety Report 9518822 (Version 1)
Quarter: 2013Q3

REPORT INFORMATION
  Report Type: Spontaneous
  Country: US (occurrence: None)
  Receive Date: 20130910
  Receipt Date: 20130910
  Transmission Date: 20140515
  Serious: Yes (Hospitalization, Other)
  Sender: FDA-Public Use
  Company Number: None

PATIENT
  Age: 100 Year
  Sex: Female
  Weight: 63 kg

DRUGS (1)
  1. CEFEPIME [Suspect]
     Indication: INFECTION
     Dosage: 2 G  TID  INTRAVENOUS
     Route: 042
     Dates: start: 20130901, end: 20130907

REACTIONS (5)
  - Confusional state [None]
  - Mental status changes [None]
  - Hallucination [None]
  - Stupor [None]
  - Myoclonus [None]
